FAERS Safety Report 8515510 (Version 4)
Quarter: 2013Q2

REPORT INFORMATION
  Report Type: Report from Study
  Country: CA (occurrence: CA)
  Receive Date: 20120417
  Receipt Date: 20130425
  Transmission Date: 20140414
  Serious: Yes (Other)
  Sender: FDA-Public Use
  Company Number: CA-BRISTOL-MYERS SQUIBB COMPANY-16510539

PATIENT
  Age: 33 Year
  Sex: Female

DRUGS (2)
  1. ORENCIA [Suspect]
     Indication: RHEUMATOID ARTHRITIS
     Dosage: LAST INFUSION ON 12MAR2012,17JUL12?NO OF INF: 38; EXP:JUL2015
     Route: 042
     Dates: start: 20080728
  2. METHOTREXATE TABS [Suspect]

REACTIONS (4)
  - Gallbladder disorder [Unknown]
  - Sinusitis [Unknown]
  - Croup infectious [Unknown]
  - Oral herpes [Recovering/Resolving]
